FAERS Safety Report 8021338-5 (Version None)
Quarter: 2012Q1

REPORT INFORMATION
  Report Type: 
  Country: None (occurrence: None)
  Receive Date: 20120104
  Receipt Date: 20110816
  Transmission Date: 20120608
  Serious: Yes (Other)
  Sender: FDA-Public Use
  Company Number: US-BAYER-2011-065793

PATIENT
  Sex: Female

DRUGS (1)
  1. NEXAVAR [Suspect]

REACTIONS (1)
  - PLATELET COUNT DECREASED [None]
